FAERS Safety Report 5723912-5 (Version None)
Quarter: 2008Q2

REPORT INFORMATION
  Report Type: 
  Country: None (occurrence: None)
  Receive Date: 20080430
  Receipt Date: 20080422
  Transmission Date: 20081010
  Serious: Yes (Other)
  Sender: FDA-Public Use
  Company Number: US-ALLERGAN-0804817US

PATIENT
  Sex: Female

DRUGS (1)
  1. OPTIVE [Suspect]
     Indication: DRY EYE
     Dosage: UNK, PRN
     Route: 047

REACTIONS (1)
  - INTRAOCULAR PRESSURE INCREASED [None]
